FAERS Safety Report 6342114-5 (Version None)
Quarter: 2009Q3

REPORT INFORMATION
  Report Type: 
  Country: None (occurrence: None)
  Receive Date: 20090903
  Receipt Date: 20090903
  Transmission Date: 20100115
  Serious: Yes (Other)
  Sender: FDA-Public Use
  Company Number: None

PATIENT
  Age: 60 Year
  Sex: Male
  Weight: 86.1834 kg

DRUGS (2)
  1. CADUET [Suspect]
     Indication: HYPERTENSION
     Dosage: 1 DAILY ORAL
     Route: 048
     Dates: start: 20040101, end: 20081105
  2. NORVASC [Suspect]
     Indication: HYPERTENSION
     Dosage: 1 DAILY ORAL
     Route: 048
     Dates: start: 19980101, end: 20040101

REACTIONS (2)
  - GINGIVAL SWELLING [None]
  - JOINT SWELLING [None]
